FAERS Safety Report 14446575 (Version 2)
Quarter: 2018Q1

REPORT INFORMATION
  Report Type: Spontaneous
  Country: US (occurrence: US)
  Receive Date: 20180126
  Receipt Date: 20180207
  Transmission Date: 20180509
  Serious: Yes (Other)
  Sender: FDA-Public Use
  Company Number: US-MALLINCKRODT-T201800208

PATIENT
  Sex: Female
  Weight: 48 kg

DRUGS (1)
  1. METHYLPHENIDATE HYDROCHLORIDE EXTENDED RELEASE TABLETS [Suspect]
     Active Substance: METHYLPHENIDATE HYDROCHLORIDE
     Indication: PRODUCT USED FOR UNKNOWN INDICATION
     Dosage: 70 MGS A DAY (20 MGS THREE TIMES A DAY AND 10 MGS ONCE A DAY)
     Route: 065

REACTIONS (4)
  - Gastric ulcer [Not Recovered/Not Resolved]
  - Reaction to excipient [Unknown]
  - Musculoskeletal stiffness [Not Recovered/Not Resolved]
  - Gastroenteritis eosinophilic [Not Recovered/Not Resolved]
